FAERS Safety Report 14306124 (Version 1)
Quarter: 2017Q4

REPORT INFORMATION
  Report Type: Spontaneous
  Country: US (occurrence: US)
  Receive Date: 20171219
  Receipt Date: 20171219
  Transmission Date: 20180321
  Serious: No
  Sender: FDA-Public Use
  Company Number: US-SHIRE-US201732253

PATIENT
  Sex: Female
  Weight: 77.98 kg

DRUGS (1)
  1. CUVITRU [Suspect]
     Active Substance: HUMAN IMMUNOGLOBULIN G
     Indication: IMMUNODEFICIENCY COMMON VARIABLE
     Dosage: 25 G, EVERY 14 DAYS
     Route: 058
     Dates: start: 201704

REACTIONS (2)
  - Tremor [Not Recovered/Not Resolved]
  - Head titubation [Not Recovered/Not Resolved]
